FAERS Safety Report 8001656-7 (Version None)
Quarter: 2011Q4

REPORT INFORMATION
  Report Type: 
  Country: None (occurrence: None)
  Receive Date: 20111219
  Receipt Date: 20111205
  Transmission Date: 20120403
  Serious: Yes (Other)
  Sender: FDA-Public Use
  Company Number: 1000025941

PATIENT
  Age: 48 Year
  Sex: Female

DRUGS (7)
  1. DOGMATYL (SULPIRIDE) (TABLETS) (SULIPIRIDE) [Concomitant]
  2. EVAMYL (LORMETAZEPAM) (TABLETS) (LORMETAZEPAM) [Concomitant]
  3. LUVOX (FLUVOXAMINE MALEATE) (TABLETS) (FLUVOXAMINE MALEATE) [Concomitant]
  4. LEXAPRO [Suspect]
     Indication: ADJUSTMENT DISORDER WITH DEPRESSED MOOD
     Dosage: 10 MG (10 MG , 1 IN 1 D), ORAL
     Route: 048
     Dates: start: 20111116, end: 20111116
  5. MILNACIPRAN HYDROCHLORIDE (MILNACIPRAN HYDROCHLORIDE) (TABLETS) (MILNA [Concomitant]
  6. HALCION (TRIAZOLAM) (TABLETS) (TRIAZOLAM) [Concomitant]
  7. WYPAX (LORAZEPAM (TABLETS) (LORAZEPAM) [Concomitant]

REACTIONS (5)
  - ANAPHYLACTIC REACTION [None]
  - PERIPHERAL COLDNESS [None]
  - FEELING ABNORMAL [None]
  - DIARRHOEA [None]
  - BLOOD PRESSURE DECREASED [None]
